FAERS Safety Report 4766624-7 (Version None)
Quarter: 2005Q3

REPORT INFORMATION
  Report Type: 
  Country: None (occurrence: None)
  Receive Date: 20050912
  Receipt Date: 20050801
  Transmission Date: 20060218
  Serious: Yes (Hospitalization)
  Sender: FDA-Public Use
  Company Number: A03200502312

PATIENT
  Age: 68 Year
  Sex: Female
  Weight: 909.0084 kg

DRUGS (15)
  1. ELOXATIN [Suspect]
     Indication: COLORECTAL CANCER
     Dosage: 165 MG Q2W - INTRAVENOUS NOS
     Route: 042
     Dates: start: 20050725, end: 20050725
  2. ELOXATIN [Suspect]
     Indication: METASTASES TO LIVER
     Dosage: 165 MG Q2W - INTRAVENOUS NOS
     Route: 042
     Dates: start: 20050725, end: 20050725
  3. AVASTIN [Suspect]
     Indication: COLORECTAL CANCER
     Dosage: 455 MG Q2W - INTRAVENOUS NOS
     Route: 042
     Dates: start: 20050725, end: 20050725
  4. AVASTIN [Suspect]
     Indication: METASTASES TO LIVER
     Dosage: 455 MG Q2W - INTRAVENOUS NOS
     Route: 042
     Dates: start: 20050725, end: 20050725
  5. FLUOROURACIL [Suspect]
     Indication: COLORECTAL CANCER
     Dosage: INTRAVENOUS NOS
     Route: 042
  6. FLUOROURACIL [Suspect]
     Indication: METASTASES TO LIVER
     Dosage: INTRAVENOUS NOS
     Route: 042
  7. LEUCOVORIN CALCIUM [Suspect]
     Indication: COLORECTAL CANCER
     Dosage: INTRAENOUS NOS
     Route: 042
  8. LEUCOVORIN CALCIUM [Suspect]
     Indication: METASTASES TO LIVER
     Dosage: INTRAENOUS NOS
     Route: 042
  9. LEVOTHYROXINE SODIUM [Concomitant]
  10. HYDROCHLOROTHIAZIDE [Concomitant]
  11. PHENYTOIN SODIUM CAP [Concomitant]
  12. FLUOXETINE HCL [Concomitant]
  13. PERCOCET [Concomitant]
  14. ALPRAZOLAM [Concomitant]
  15. ONDASETRON HYDROCHLORIDE [Concomitant]

REACTIONS (3)
  - DIALYSIS [None]
  - PYREXIA [None]
  - RENAL FAILURE [None]
